FAERS Safety Report 4598608-6 (Version None)
Quarter: 2005Q1

REPORT INFORMATION
  Report Type: 
  Country: None (occurrence: None)
  Receive Date: 20050301
  Receipt Date: 20050301
  Transmission Date: 20050727
  Serious: Yes (Hospitalization)
  Sender: FDA-Public Use
  Company Number: None

PATIENT
  Sex: Male

DRUGS (14)
  1. WARFARIN SODIUM [Suspect]
     Indication: ATRIAL FIBRILLATION
     Dosage: 2.5 MG / 5 MG MWF/REST ORAL
     Route: 048
  2. WARFARIN SODIUM [Suspect]
     Indication: CARDIOMYOPATHY
     Dosage: 2.5 MG / 5 MG MWF/REST ORAL
     Route: 048
  3. ACARBOSE [Concomitant]
  4. CARVEDILOL [Concomitant]
  5. DIGOXIN [Concomitant]
  6. FUROSEMIDE [Concomitant]
  7. GLYBURIDE [Concomitant]
  8. NPH INSULIN [Concomitant]
  9. LISINOPRIL [Concomitant]
  10. OMEPRAZOLE [Concomitant]
  11. OXYCODONE AND ACETAMINOPHEN [Concomitant]
  12. ROSIGLITAZONE [Concomitant]
  13. SIMVASTATIN [Concomitant]
  14. SPIRONOLACTONE [Concomitant]

REACTIONS (3)
  - COMPARTMENT SYNDROME [None]
  - OEDEMA PERIPHERAL [None]
  - PAIN IN EXTREMITY [None]
